FAERS Safety Report 23101437 (Version 1)
Quarter: 2023Q4

REPORT INFORMATION
  Report Type: Spontaneous
  Country: US (occurrence: US)
  Receive Date: 20231024
  Receipt Date: 20231024
  Transmission Date: 20240110
  Serious: No
  Sender: FDA-Public Use
  Company Number: US-AMGEN-USASP2023188503

PATIENT
  Age: 47 Year
  Sex: Male

DRUGS (5)
  1. OTEZLA [Suspect]
     Active Substance: APREMILAST
     Indication: Psoriasis
     Dosage: 30 MILLIGRAM, BID
     Route: 048
     Dates: start: 20230926
  2. IBUPROFEN [Concomitant]
     Active Substance: IBUPROFEN
     Dosage: 200 MILLIGRAM
  3. LISINOPRIL [Concomitant]
     Active Substance: LISINOPRIL
     Dosage: 10 MILLIGRAM
  4. MELOXICAM [Concomitant]
     Active Substance: MELOXICAM
     Dosage: 7.5 MILLIGRAM
  5. VITAMIN D [Concomitant]
     Active Substance: VITAMIN D NOS
     Dosage: 400 UNIT

REACTIONS (1)
  - Pain [Unknown]

NARRATIVE: CASE EVENT DATE: 20230901
